FAERS Safety Report 8976125 (Version 1)
Quarter: 2012Q4

REPORT INFORMATION
  Report Type: Report from Study
  Country: CA (occurrence: CA)
  Receive Date: 20121220
  Receipt Date: 20121220
  Transmission Date: 20130627
  Serious: Yes (Other)
  Sender: FDA-Public Use
  Company Number: CA-ROCHE-1167383

PATIENT
  Age: 34 Year
  Sex: Male

DRUGS (1)
  1. OMALIZUMAB [Suspect]
     Indication: PRODUCT USED FOR UNKNOWN INDICATION
     Route: 065

REACTIONS (10)
  - Pain in extremity [Unknown]
  - Asthma [Unknown]
  - Bronchitis [Recovered/Resolved]
  - Ear pain [Unknown]
  - Nasopharyngitis [Recovering/Resolving]
  - Stress [Unknown]
  - Blood pressure increased [Unknown]
  - Urticaria [Unknown]
  - Dizziness [Unknown]
  - Fatigue [Unknown]
